FAERS Safety Report 4740399-X (Version None)
Quarter: 2005Q3

REPORT INFORMATION
  Report Type: 
  Country: None (occurrence: None)
  Receive Date: 20050810
  Receipt Date: 20050729
  Transmission Date: 20060218
  Serious: Yes (Other)
  Sender: FDA-Public Use
  Company Number: US-JNJFOC-20050800888

PATIENT
  Sex: Female
  Weight: 77.11 kg

DRUGS (6)
  1. REMICADE [Suspect]
     Indication: RHEUMATOID ARTHRITIS
     Route: 042
  2. SULFASALAZINE [Concomitant]
  3. ANALGESICS [Concomitant]
  4. NSAIDS [Concomitant]
  5. ENBREL [Concomitant]
  6. ARAVA [Concomitant]

REACTIONS (3)
  - INFECTION [None]
  - NEPHRECTOMY [None]
  - URINARY TRACT INFECTION [None]
